FAERS Safety Report 22041675 (Version 2)
Quarter: 2023Q1

REPORT INFORMATION
  Report Type: Spontaneous
  Country: GR (occurrence: GR)
  Receive Date: 20230227
  Receipt Date: 20230228
  Transmission Date: 20230418
  Serious: Yes (Other)
  Sender: FDA-Public Use
  Company Number: GR-PFIZER INC-202300078935

PATIENT
  Age: 16 Year
  Sex: Male
  Weight: 150 kg

DRUGS (2)
  1. GENOTROPIN [Suspect]
     Active Substance: SOMATROPIN
     Indication: Hypopituitarism
     Dosage: UNK
     Dates: end: 202103
  2. GENOTROPIN [Suspect]
     Active Substance: SOMATROPIN
     Indication: Hypopituitarism
     Dosage: UNK
     Dates: end: 202103

REACTIONS (4)
  - Intracranial pressure increased [Unknown]
  - Disease recurrence [Unknown]
  - Weight increased [Unknown]
  - Weight decreased [Unknown]
